FAERS Safety Report 5393136-2 (Version None)
Quarter: 2007Q3

REPORT INFORMATION
  Report Type: 
  Country: None (occurrence: None)
  Receive Date: 20070718
  Receipt Date: 20061004
  Transmission Date: 20080115
  Serious: Yes (Hospitalization, Disabling, Other)
  Sender: FDA-Public Use
  Company Number: 2006123686

PATIENT
  Age: 46 Year
  Sex: Female
  Weight: 82.5547 kg

DRUGS (2)
  1. CELEBREX [Suspect]
     Indication: ARTHRALGIA
     Dosage: 2 IN 1 D
     Dates: start: 19950101, end: 20000101
  2. CELEBREX [Suspect]
     Indication: TENDON DISORDER
     Dosage: 2 IN 1 D
     Dates: start: 19950101, end: 20000101

REACTIONS (2)
  - DEEP VEIN THROMBOSIS [None]
  - PULMONARY EMBOLISM [None]
